FAERS Safety Report 17846084 (Version 3)
Quarter: 2020Q3

REPORT INFORMATION
  Report Type: Other
  Country: TH (occurrence: TH)
  Receive Date: 20200601
  Receipt Date: 20200820
  Transmission Date: 20201105
  Serious: Yes (Other)
  Sender: FDA-Public Use
  Company Number: TH-ROCHE-2607123

PATIENT
  Age: 54 Year
  Sex: Male
  Weight: 56 kg

DRUGS (3)
  1. RITUXIMAB. [Suspect]
     Active Substance: RITUXIMAB
     Indication: DIFFUSE LARGE B-CELL LYMPHOMA REFRACTORY
     Route: 042
     Dates: start: 20200501, end: 20200522
  2. DEXAMETHASONE. [Suspect]
     Active Substance: DEXAMETHASONE
     Indication: DIFFUSE LARGE B-CELL LYMPHOMA REFRACTORY
     Dosage: HIGH DOSE
     Route: 042
  3. POLATUZUMAB VEDOTIN. [Suspect]
     Active Substance: POLATUZUMAB VEDOTIN
     Indication: DIFFUSE LARGE B-CELL LYMPHOMA REFRACTORY
     Route: 042
     Dates: start: 20200501, end: 20200522

REACTIONS (5)
  - Generalised tonic-clonic seizure [Recovered/Resolved]
  - Central nervous system lesion [Unknown]
  - B-cell lymphoma refractory [Unknown]
  - Brain oedema [Unknown]
  - Central nervous system neoplasm [Unknown]

NARRATIVE: CASE EVENT DATE: 20200522
